FAERS Safety Report 6695897-9 (Version None)
Quarter: 2010Q2

REPORT INFORMATION
  Report Type: 
  Country: None (occurrence: None)
  Receive Date: 20100426
  Receipt Date: 20090804
  Transmission Date: 20101027
  Serious: No
  Sender: FDA-Public Use
  Company Number: A0800432A

PATIENT
  Age: 64 Year
  Sex: Female

DRUGS (6)
  1. ONDANSETRON [Suspect]
     Indication: PROPHYLAXIS OF NAUSEA AND VOMITING
     Dosage: 4MG THREE TIMES PER DAY
     Route: 048
     Dates: start: 20090722, end: 20090729
  2. TYKERB [Suspect]
     Indication: BREAST CANCER
     Dosage: 4TAB PER DAY
     Route: 048
     Dates: start: 20090719, end: 20090729
  3. HERCEPTIN [Concomitant]
  4. UNKNOWN [Concomitant]
  5. LISINOPRIL [Concomitant]
  6. DIABETES MEDICATION [Concomitant]

REACTIONS (5)
  - ASTHENIA [None]
  - BLOOD CREATININE INCREASED [None]
  - DRUG INEFFECTIVE [None]
  - NAUSEA [None]
  - VOMITING [None]
